FAERS Safety Report 8524815-3 (Version None)
Quarter: 2012Q3

REPORT INFORMATION
  Report Type: 
  Country: None (occurrence: None)
  Receive Date: 20120720
  Receipt Date: 20120524
  Transmission Date: 20120928
  Serious: Yes (Other)
  Sender: FDA-Public Use
  Company Number: SE-GLAXOSMITHKLINE-B0804338A

PATIENT
  Sex: Female

DRUGS (4)
  1. FLUTICASONE PROPIONATE/SALMETEROL [Suspect]
     Indication: ASTHMA
     Dosage: 1U TWICE PER DAY
     Route: 055
     Dates: start: 20081120, end: 20120604
  2. VENTOLIN [Concomitant]
     Indication: ASTHMA
     Dosage: .1MG AS REQUIRED
     Dates: start: 20061206
  3. FLUTICASONE PROPIONATE/SALMETEROL [Suspect]
     Indication: ASTHMA
     Dosage: 1U TWICE PER DAY
     Route: 065
     Dates: start: 20051205, end: 20081120
  4. AIROMIR [Concomitant]
     Indication: ASTHMA
     Dosage: .1MG AS REQUIRED
     Dates: start: 20051017, end: 20061206

REACTIONS (6)
  - AGGRESSION [None]
  - SOMNAMBULISM [None]
  - ILL-DEFINED DISORDER [None]
  - SLEEP DISORDER [None]
  - MOOD SWINGS [None]
  - WEIGHT INCREASED [None]
